FAERS Safety Report 8172205-8 (Version None)
Quarter: 2012Q1

REPORT INFORMATION
  Report Type: 
  Country: None (occurrence: None)
  Receive Date: 20120228
  Receipt Date: 20120220
  Transmission Date: 20120608
  Serious: Yes (Hospitalization)
  Sender: FDA-Public Use
  Company Number: FR-BAXTER-2012BH005305

PATIENT
  Age: 65 Year
  Sex: Female
  Weight: 80 kg

DRUGS (5)
  1. PREDNISONE TAB [Suspect]
     Route: 048
     Dates: start: 20040201, end: 20070301
  2. PREDNISONE TAB [Suspect]
     Indication: WEGENER'S GRANULOMATOSIS
     Route: 048
     Dates: start: 20080201, end: 20100501
  3. CYCLOPHOSPHAMIDE [Suspect]
     Indication: WEGENER'S GRANULOMATOSIS
     Route: 048
     Dates: start: 20060401, end: 20070301
  4. CYCLOPHOSPHAMIDE [Suspect]
     Indication: WEGENER'S GRANULOMATOSIS
     Route: 042
     Dates: start: 20040201, end: 20041201
  5. CYCLOPHOSPHAMIDE [Suspect]
     Route: 048
     Dates: start: 20080201, end: 20090501

REACTIONS (3)
  - BASAL CELL CARCINOMA [None]
  - HAEMATURIA [None]
  - HERPES VIRUS INFECTION [None]
